FAERS Safety Report 18731504 (Version 1)
Quarter: 2021Q1

REPORT INFORMATION
  Report Type: Spontaneous
  Country: US (occurrence: US)
  Receive Date: 20210112
  Receipt Date: 20210112
  Transmission Date: 20210419
  Serious: No
  Sender: FDA-Public Use
  Company Number: US-INSUD PHARMA-2012US00287

PATIENT

DRUGS (2)
  1. LANSOPRAZOLE. [Suspect]
     Active Substance: LANSOPRAZOLE
     Indication: GASTROINTESTINAL DISORDER
     Dosage: UNKNOWN
     Route: 065
  2. LANSOPRAZOLE. [Suspect]
     Active Substance: LANSOPRAZOLE
     Indication: GASTROINTESTINAL DISORDER
     Dosage: UNKNOWN
     Route: 065

REACTIONS (6)
  - Product substitution issue [Unknown]
  - Pharyngeal swelling [Unknown]
  - Pruritus [Unknown]
  - Eye swelling [Unknown]
  - Drug ineffective [Unknown]
  - Malaise [Unknown]
